FAERS Safety Report 5557088-4 (Version None)
Quarter: 2007Q4

REPORT INFORMATION
  Report Type: 
  Country: None (occurrence: None)
  Receive Date: 20071214
  Receipt Date: 20071203
  Transmission Date: 20080405
  Serious: Yes (Hospitalization)
  Sender: FDA-Public Use
  Company Number: SE-JNJFOC-20071200809

PATIENT
  Age: 65 Year
  Sex: Male

DRUGS (12)
  1. DURAGESIC-100 [Suspect]
     Indication: DRUG USE FOR UNKNOWN INDICATION
     Route: 062
  2. NALOXON [Suspect]
     Indication: DRUG TOXICITY
     Route: 042
  3. ZOLPIDEM TARTRATE [Concomitant]
  4. FRAGMIN [Concomitant]
  5. XYLOCAIN [Concomitant]
  6. ACETAMINOPHEN [Concomitant]
  7. PRIMPERAN INJ [Concomitant]
  8. LAXOBERAL [Concomitant]
  9. LAKTULOS [Concomitant]
  10. MORPHINE [Concomitant]
  11. OXASCAND [Concomitant]
  12. OXYNORM [Concomitant]

REACTIONS (4)
  - DRUG TOXICITY [None]
  - PALPITATIONS [None]
  - SOMNOLENCE [None]
  - VOMITING [None]
